FAERS Safety Report 9506054 (Version 1)
Quarter: 2013Q1

REPORT INFORMATION
  Report Type: Spontaneous
  Country: US (occurrence: None)
  Receive Date: 20130305
  Receipt Date: 20130305
  Transmission Date: 20140127
  Serious: Yes (Hospitalization)
  Sender: FDA-Public Use
  Company Number: USA/USA/12/0027140

PATIENT
  Age: 69 Year
  Sex: Male

DRUGS (6)
  1. VENLAFAXINE [Suspect]
     Indication: DEPRESSION
  2. METOPROLOL (METOPROLOL) [Concomitant]
  3. GLIPIZIDE (GLIPIZIDE) [Concomitant]
  4. METFORMIN (METFORMIN) [Concomitant]
  5. ASPIRIN (ACETYLSALICYLIC AICD) [Concomitant]
  6. DIVALPROXE SODIUM (VALOPROATE SEMISODIUM) [Concomitant]

REACTIONS (2)
  - Akathisia [None]
  - Agitation [None]
